FAERS Safety Report 18420605 (Version 2)
Quarter: 2020Q4

REPORT INFORMATION
  Report Type: Spontaneous
  Country: PL (occurrence: PL)
  Receive Date: 20201023
  Receipt Date: 20201105
  Transmission Date: 20210114
  Serious: Yes (Hospitalization)
  Sender: FDA-Public Use
  Company Number: PL-JNJFOC-20201025937

PATIENT
  Sex: Female
  Weight: 1.79 kg

DRUGS (2)
  1. DUROGESIC [Suspect]
     Active Substance: FENTANYL
     Indication: SEDATION
     Route: 065
  2. DUROGESIC [Suspect]
     Active Substance: FENTANYL
     Indication: ANALGESIC THERAPY

REACTIONS (7)
  - Product use issue [Unknown]
  - Off label use [Unknown]
  - Bradycardia [Unknown]
  - Circulatory collapse [Unknown]
  - Anaemia [Unknown]
  - Hypotension [Unknown]
  - Staphylococcal infection [Unknown]
